FAERS Safety Report 9989582 (Version 2)
Quarter: 2014Q1

REPORT INFORMATION
  Report Type: Spontaneous
  Country: US (occurrence: US)
  Receive Date: 20140310
  Receipt Date: 20140310
  Transmission Date: 20141002
  Serious: No
  Sender: FDA-Public Use
  Company Number: US-ABBVIE-13P-163-1067632-00

PATIENT
  Age: 77 Year
  Sex: Female

DRUGS (15)
  1. HUMIRA [Suspect]
     Indication: PSORIASIS
     Dates: start: 20121018
  2. PROPRANOLOL [Concomitant]
     Indication: CARDIAC DISORDER
  3. OMEPRAZOLE [Concomitant]
     Indication: GASTROOESOPHAGEAL REFLUX DISEASE
  4. CAPTOPRIL [Concomitant]
     Indication: CARDIAC DISORDER
  5. CAPTOPRIL [Concomitant]
     Indication: ANXIETY
  6. LOVASTATIN [Concomitant]
     Indication: BLOOD CHOLESTEROL ABNORMAL
  7. AMLODIPINE [Concomitant]
     Indication: CARDIAC DISORDER
  8. LEVOTHYROXINE [Concomitant]
     Indication: HYPOTHYROIDISM
  9. LOTEMAX [Concomitant]
     Indication: MACULAR DEGENERATION
     Dosage: RIGHT EYE
  10. PRESERVISION EYE VITAMIN AND MINERAL SUPPL. [Concomitant]
     Indication: PRODUCT USED FOR UNKNOWN INDICATION
  11. CLARITIN [Concomitant]
     Indication: HYPERSENSITIVITY
  12. CALCIUM + VITAMIN D [Concomitant]
     Indication: PRODUCT USED FOR UNKNOWN INDICATION
  13. FISH OIL [Concomitant]
     Indication: PRODUCT USED FOR UNKNOWN INDICATION
  14. VITAMIN D NOS [Concomitant]
     Indication: PRODUCT USED FOR UNKNOWN INDICATION
  15. VITAMIN C [Concomitant]
     Indication: PRODUCT USED FOR UNKNOWN INDICATION

REACTIONS (5)
  - Scratch [Not Recovered/Not Resolved]
  - Injection site swelling [Not Recovered/Not Resolved]
  - Dyspnoea [Unknown]
  - Psoriasis [Recovering/Resolving]
  - Device malfunction [Unknown]
